FAERS Safety Report 5443100-X (Version None)
Quarter: 2007Q3

REPORT INFORMATION
  Report Type: 
  Country: None (occurrence: None)
  Receive Date: 20070830
  Receipt Date: 20070821
  Transmission Date: 20080115
  Serious: Yes (Hospitalization)
  Sender: FDA-Public Use
  Company Number: 2007BI017670

PATIENT
  Age: 45 Year
  Sex: Male
  Weight: 63.9572 kg

DRUGS (2)
  1. AVONEX [Suspect]
     Indication: MULTIPLE SCLEROSIS
     Dosage: ;IM
     Route: 030
  2. OXYTROL [Concomitant]

REACTIONS (11)
  - DECUBITUS ULCER [None]
  - DEHYDRATION [None]
  - DEPRESSION [None]
  - FALL [None]
  - GASTRIC DISORDER [None]
  - MULTIPLE SCLEROSIS [None]
  - ORAL INTAKE REDUCED [None]
  - PAIN [None]
  - RASH [None]
  - SUICIDAL IDEATION [None]
  - URINARY TRACT INFECTION [None]
